FAERS Safety Report 23896631 (Version 2)
Quarter: 2024Q2

REPORT INFORMATION
  Report Type: Spontaneous
  Country: US (occurrence: US)
  Receive Date: 20240524
  Receipt Date: 20240607
  Transmission Date: 20240716
  Serious: No
  Sender: FDA-Public Use
  Company Number: US-Calliditas-2024CAL00761

PATIENT
  Age: 45 Year
  Sex: Female

DRUGS (3)
  1. TARPEYO [Suspect]
     Active Substance: BUDESONIDE
     Indication: IgA nephropathy
     Route: 048
     Dates: start: 20240406
  2. LOSARTAN [Concomitant]
     Active Substance: LOSARTAN
  3. ALLOPURINOL [Concomitant]
     Active Substance: ALLOPURINOL
     Dosage: INCREASED TO 300 MG

REACTIONS (11)
  - Abdominal pain upper [Unknown]
  - Muscle fatigue [Unknown]
  - Muscle spasms [Unknown]
  - Medial tibial stress syndrome [Unknown]
  - Muscle tightness [Unknown]
  - Myalgia [Unknown]
  - Sleep disorder [Unknown]
  - Blood pressure increased [Unknown]
  - Abdominal distension [Unknown]
  - Swelling [Unknown]
  - Weight increased [Unknown]
